FAERS Safety Report 24302947 (Version 1)
Quarter: 2024Q3

REPORT INFORMATION
  Report Type: Spontaneous
  Country: US (occurrence: US)
  Receive Date: 20240910
  Receipt Date: 20240910
  Transmission Date: 20241016
  Serious: No
  Sender: PHARMALEX
  Company Number: US-PharmaLex US Corporation-2161433

PATIENT
  Age: 31 Year
  Sex: Female

DRUGS (1)
  1. CYTALUX [Suspect]
     Active Substance: PAFOLACIANINE SODIUM
     Indication: Product used for unknown indication
     Route: 042
     Dates: start: 20240829, end: 20240829

REACTIONS (2)
  - Nausea [Unknown]
  - Vomiting [Unknown]
